FAERS Safety Report 23142172 (Version 2)
Quarter: 2023Q4

REPORT INFORMATION
  Report Type: Other
  Country: AU (occurrence: None)
  Receive Date: 20231103
  Receipt Date: 20231207
  Transmission Date: 20240110
  Serious: Yes (Disabling)
  Sender: FDA-Public Use
  Company Number: AU-ROCHE-3450437

PATIENT
  Age: 41 Year
  Sex: Female

DRUGS (2)
  1. OCRELIZUMAB [Suspect]
     Active Substance: OCRELIZUMAB
     Indication: Multiple sclerosis
     Route: 042
  2. OCRELIZUMAB [Suspect]
     Active Substance: OCRELIZUMAB
     Dosage: THERAPY DATE : 27/NOV/2023
     Route: 042

REACTIONS (3)
  - Multiple sclerosis [Recovering/Resolving]
  - COVID-19 [Recovering/Resolving]
  - Infusion related reaction [Recovered/Resolved]

NARRATIVE: CASE EVENT DATE: 20231101
